FAERS Safety Report 17807257 (Version 4)
Quarter: 2021Q3

REPORT INFORMATION
  Report Type: Spontaneous
  Country: SK (occurrence: SK)
  Receive Date: 20200520
  Receipt Date: 20210916
  Transmission Date: 20211014
  Serious: Yes (Life-Threatening, Other)
  Sender: FDA-Public Use
  Company Number: SK-ELI_LILLY_AND_COMPANY-SK202004007616

PATIENT
  Age: 60 Year
  Sex: Male

DRUGS (16)
  1. METHOTREXATE. [Suspect]
     Active Substance: METHOTREXATE
     Indication: NON-HODGKIN^S LYMPHOMA
     Dosage: FIRST LINE THERAPY, UNKNOWN
     Route: 065
  2. OXALIPLATIN. [Suspect]
     Active Substance: OXALIPLATIN
     Indication: FOLLICULAR LYMPHOMA
  3. CYTOSINE ARABINOSIDE [Suspect]
     Active Substance: CYTARABINE
     Indication: B-CELL LYMPHOMA
     Dosage: FIRST LINE AND SECOND LINE THERAPY, UNKNOWN
     Route: 065
  4. ETOPOSIDE. [Suspect]
     Active Substance: ETOPOSIDE
     Indication: NON-HODGKIN^S LYMPHOMA
     Dosage: FIRST LINE THERAPY, UNKNOWN
     Route: 065
  5. OXALIPLATIN. [Suspect]
     Active Substance: OXALIPLATIN
     Indication: CHEMOTHERAPY
  6. RITUXIMAB. [Suspect]
     Active Substance: RITUXIMAB
     Indication: CHEMOTHERAPY
  7. GEMCITABINE HYDROCHLORIDE. [Suspect]
     Active Substance: GEMCITABINE HYDROCHLORIDE
     Indication: CHEMOTHERAPY
  8. RITUXIMAB. [Suspect]
     Active Substance: RITUXIMAB
     Indication: B-CELL LYMPHOMA REFRACTORY
     Dosage: FIRST AND SECOND LINE THERAPY, CYCLE, UNKNOWN
     Route: 065
  9. CISPLATIN. [Suspect]
     Active Substance: CISPLATIN
     Indication: B-CELL LYMPHOMA
     Dosage: UNK, UNKNOWN
     Route: 065
  10. IFOSFAMIDE. [Suspect]
     Active Substance: IFOSFAMIDE
     Indication: NON-HODGKIN^S LYMPHOMA
     Dosage: FIRST LINE THERAPY, UNKNOWN
     Route: 065
  11. OXALIPLATIN. [Suspect]
     Active Substance: OXALIPLATIN
     Indication: B-CELL LYMPHOMA REFRACTORY
     Dosage: 3, CYCLE
     Route: 065
  12. CYCLOPHOSPHAMIDE DCI [Suspect]
     Active Substance: CYCLOPHOSPHAMIDE
     Indication: NON-HODGKIN^S LYMPHOMA
     Dosage: FIRST LINE THERAPY, UNKNOWN
     Route: 065
  13. GEMCITABINE HYDROCHLORIDE. [Suspect]
     Active Substance: GEMCITABINE HYDROCHLORIDE
     Indication: B-CELL LYMPHOMA
     Dosage: UNK UNK, UNKNOWN
     Route: 065
  14. DEXAMETHASONE. [Suspect]
     Active Substance: DEXAMETHASONE
     Indication: B-CELL LYMPHOMA
     Dosage: FIRST AND SECOND LINE THERAPY, UNKNOWN
     Route: 065
  15. VINCRISTINE [Suspect]
     Active Substance: VINCRISTINE
     Indication: NON-HODGKIN^S LYMPHOMA
     Dosage: FIRST LINE THERAPY, UNKNOWN
     Route: 065
  16. DOXORUBICIN [Suspect]
     Active Substance: DOXORUBICIN
     Indication: NON-HODGKIN^S LYMPHOMA
     Dosage: FIRST LINE THERAPY, UNKNOWN
     Route: 065

REACTIONS (12)
  - Haematotoxicity [Recovered/Resolved]
  - Condition aggravated [Not Recovered/Not Resolved]
  - Lymphadenopathy [Not Recovered/Not Resolved]
  - Platelet count decreased [Unknown]
  - Neutropenia [Recovered/Resolved]
  - Skin ulcer [Unknown]
  - Anaemia [Recovered/Resolved]
  - Off label use [Unknown]
  - Immune thrombocytopenia [Recovered/Resolved]
  - Thrombocytopenia [Recovering/Resolving]
  - Febrile neutropenia [Recovered/Resolved]
  - Abscess [Recovered/Resolved]
